FAERS Safety Report 14583328 (Version 1)
Quarter: 2018Q1

REPORT INFORMATION
  Report Type: Spontaneous
  Country: DE (occurrence: DE)
  Receive Date: 20180228
  Receipt Date: 20180228
  Transmission Date: 20180509
  Serious: Yes (Hospitalization, Other)
  Sender: FDA-Public Use
  Company Number: DE-OTSUKA-DJ201210319

PATIENT

DRUGS (1)
  1. ABILIFY [Suspect]
     Active Substance: ARIPIPRAZOLE
     Indication: BIPOLAR DISORDER
     Route: 048
     Dates: start: 2009, end: 20121213

REACTIONS (6)
  - Hepatic enzyme increased [Recovering/Resolving]
  - Diabetes mellitus [Recovering/Resolving]
  - Liver function test abnormal [Recovering/Resolving]
  - Hypertension [Unknown]
  - Tobacco abuse [Unknown]
  - Obesity [Unknown]

NARRATIVE: CASE EVENT DATE: 201211
